FAERS Safety Report 6978880-5 (Version None)
Quarter: 2010Q3

REPORT INFORMATION
  Report Type: 
  Country: None (occurrence: None)
  Receive Date: 20100913
  Receipt Date: 20100904
  Transmission Date: 20110219
  Serious: Yes (Hospitalization)
  Sender: FDA-Public Use
  Company Number: US-SANOFI-AVENTIS-2010SA054081

PATIENT
  Age: 53 Year
  Sex: Male

DRUGS (2)
  1. LANTUS [Suspect]
     Indication: DIABETES MELLITUS
     Dosage: 20 UNITS IN THE MORNING AND 5 UNITS IN THE EVENING
     Route: 058
  2. OPTICLICK [Suspect]
     Indication: DIABETES MELLITUS

REACTIONS (6)
  - APPENDICECTOMY [None]
  - ASTHENIA [None]
  - CLOSTRIDIAL INFECTION [None]
  - MYOCARDIAL INFARCTION [None]
  - PULMONARY EMBOLISM [None]
  - STAPHYLOCOCCAL INFECTION [None]
